FAERS Safety Report 21058985 (Version 1)
Quarter: 2022Q3

REPORT INFORMATION
  Report Type: Report from Study
  Country: GB (occurrence: GB)
  Receive Date: 20220708
  Receipt Date: 20220708
  Transmission Date: 20221027
  Serious: Yes (Hospitalization)
  Sender: FDA-Public Use
  Company Number: GB-NOVARTISPH-NVSC2022GB153405

PATIENT
  Age: 82 Year
  Sex: Male

DRUGS (2)
  1. BEOVU [Suspect]
     Active Substance: BROLUCIZUMAB-DBLL
     Indication: Neovascular age-related macular degeneration
     Dosage: 6 MG, PRN
     Route: 047
     Dates: start: 20220318
  2. BEOVU [Suspect]
     Active Substance: BROLUCIZUMAB-DBLL
     Dosage: 6 MG, PRN
     Route: 047
     Dates: start: 20220513

REACTIONS (2)
  - Cerebrovascular accident [Unknown]
  - Kidney infection [Unknown]

NARRATIVE: CASE EVENT DATE: 20220628
